FAERS Safety Report 12942126 (Version 5)
Quarter: 2017Q3

REPORT INFORMATION
  Report Type: Report from Study
  Country: US (occurrence: US)
  Receive Date: 20161115
  Receipt Date: 20170829
  Transmission Date: 20171127
  Serious: Yes (Other)
  Sender: FDA-Public Use
  Company Number: US-GILEAD-2016-0237326

PATIENT
  Age: 78 Year
  Sex: Female
  Weight: 78 kg

DRUGS (6)
  1. WARFARIN [Concomitant]
     Active Substance: WARFARIN
  2. LOSARTAN. [Concomitant]
     Active Substance: LOSARTAN
  3. LASIX [Concomitant]
     Active Substance: FUROSEMIDE
  4. ATENOLOL. [Concomitant]
     Active Substance: ATENOLOL
  5. AMBRISENTAN [Suspect]
     Active Substance: AMBRISENTAN
     Indication: PULMONARY ARTERIAL HYPERTENSION
     Dosage: 10 MG, QD
     Route: 048
     Dates: start: 20121102
  6. ADCIRCA [Concomitant]
     Active Substance: TADALAFIL

REACTIONS (6)
  - Impaired healing [Recovering/Resolving]
  - Weight decreased [Not Recovered/Not Resolved]
  - Post procedural haemorrhage [Recovering/Resolving]
  - Knee arthroplasty [Unknown]
  - Peripheral swelling [Not Recovered/Not Resolved]
  - Post procedural discharge [Unknown]

NARRATIVE: CASE EVENT DATE: 201610
